FAERS Safety Report 10752141 (Version 2)
Quarter: 2015Q2

REPORT INFORMATION
  Report Type: Spontaneous
  Country: US (occurrence: US)
  Receive Date: 20150130
  Receipt Date: 20150519
  Transmission Date: 20150821
  Serious: Yes (Other)
  Sender: FDA-Public Use
  Company Number: US-SPECTRUM PHARMACEUTICALS, INC.-14-B-US-00288

PATIENT
  Age: 48 Year
  Sex: Female

DRUGS (1)
  1. BELEODAQ [Suspect]
     Active Substance: BELINOSTAT
     Indication: LEUKAEMIA
     Dosage: 1000 MG, SINGLE
     Route: 042
     Dates: start: 20141015, end: 20141015

REACTIONS (3)
  - Vomiting [Unknown]
  - Dyspnoea [Unknown]
  - Injection site irritation [Unknown]

NARRATIVE: CASE EVENT DATE: 20141015
